FAERS Safety Report 5873173-1 (Version None)
Quarter: 2008Q3

REPORT INFORMATION
  Report Type: 
  Country: None (occurrence: None)
  Receive Date: 20080908
  Receipt Date: 20080826
  Transmission Date: 20090109
  Serious: Yes (Hospitalization)
  Sender: FDA-Public Use
  Company Number: FR-JNJFOC-20080901190

PATIENT
  Age: 68 Year
  Sex: Female

DRUGS (7)
  1. TOPALGIC [Suspect]
     Indication: PAIN IN EXTREMITY
     Route: 065
     Dates: start: 20080820, end: 20080824
  2. CONVERSYL [Concomitant]
  3. FLUDEX [Concomitant]
  4. DITROPAN [Concomitant]
  5. LEVOTHYROX [Concomitant]
  6. CRESTOR [Concomitant]
  7. DAFALGAN [Concomitant]

REACTIONS (11)
  - DEPRESSED LEVEL OF CONSCIOUSNESS [None]
  - DRY MOUTH [None]
  - FATIGUE [None]
  - HYPERHIDROSIS [None]
  - MIOSIS [None]
  - MOVEMENT DISORDER [None]
  - NAUSEA [None]
  - PRURITUS [None]
  - SEDATION [None]
  - SOCIAL AVOIDANT BEHAVIOUR [None]
  - VOMITING [None]
